FAERS Safety Report 13683200 (Version 1)
Quarter: 2017Q2

REPORT INFORMATION
  Report Type: Spontaneous
  Country: US (occurrence: US)
  Receive Date: 20170623
  Receipt Date: 20170623
  Transmission Date: 20170830
  Serious: No
  Sender: FDA-Public Use
  Company Number: US-MALLINCKRODT-T201701711

PATIENT
  Age: 52 Year
  Sex: Female

DRUGS (10)
  1. ALPRAZOLAM. [Concomitant]
     Active Substance: ALPRAZOLAM
  2. AZATHIOPRINE. [Concomitant]
     Active Substance: AZATHIOPRINE
  3. H.P. ACTHAR [Suspect]
     Active Substance: CORTICOTROPIN
     Indication: SYSTEMIC LUPUS ERYTHEMATOSUS
     Dosage: 40 UNITS (0.5 ML), TWICE WEEKLY FOR 12 WEEKS
     Route: 065
     Dates: start: 201701
  4. CEVIMELINE. [Concomitant]
     Active Substance: CEVIMELINE
  5. PREDNISONE. [Concomitant]
     Active Substance: PREDNISONE
  6. TRAZODONE [Concomitant]
     Active Substance: TRAZODONE HYDROCHLORIDE
  7. CEFDINIR. [Concomitant]
     Active Substance: CEFDINIR
  8. DICLOFENAC [Concomitant]
     Active Substance: DICLOFENAC
  9. CHANTIX [Concomitant]
     Active Substance: VARENICLINE TARTRATE
  10. TRIAMCINOLON [Concomitant]

REACTIONS (1)
  - Contusion [Not Recovered/Not Resolved]

NARRATIVE: CASE EVENT DATE: 201703
